FAERS Safety Report 11745873 (Version 1)
Quarter: 2015Q4

REPORT INFORMATION
  Report Type: Spontaneous
  Country: US (occurrence: None)
  Receive Date: 20151116
  Receipt Date: 20151116
  Transmission Date: 20160304
  Serious: No
  Sender: FDA-Public Use
  Company Number: None

PATIENT
  Age: 46 Year
  Sex: Female

DRUGS (1)
  1. LATUDA [Suspect]
     Active Substance: LURASIDONE HYDROCHLORIDE
     Indication: BIPOLAR DISORDER
     Dosage: 120 MG, @ AM
     Route: 048
     Dates: start: 201410, end: 20151021

REACTIONS (2)
  - Hypokalaemia [None]
  - Hyperkalaemia [None]

NARRATIVE: CASE EVENT DATE: 20151014
